FAERS Safety Report 4761931-6 (Version None)
Quarter: 2005Q3

REPORT INFORMATION
  Report Type: 
  Country: None (occurrence: None)
  Receive Date: 20050831
  Receipt Date: 20040728
  Transmission Date: 20060218
  Serious: Yes (Other)
  Sender: FDA-Public Use
  Company Number: US-JNJFOC-20040707819

PATIENT
  Age: 3 Year
  Sex: Male
  Weight: 11.9 kg

DRUGS (7)
  1. ORTHOCLONE OKT3 [Suspect]
     Indication: TRANSPLANT
     Dosage: 5 MG, 1 IN 1 TOTAL;  2.5 MG, 1 IN 1 TOTAL;  2.5 MG, 1 IN 1 TOTAL;  5 MG
     Dates: start: 20040709, end: 20040709
  2. ORTHOCLONE OKT3 [Suspect]
     Indication: TRANSPLANT
     Dosage: 5 MG, 1 IN 1 TOTAL;  2.5 MG, 1 IN 1 TOTAL;  2.5 MG, 1 IN 1 TOTAL;  5 MG
     Dates: start: 20040710, end: 20040710
  3. ORTHOCLONE OKT3 [Suspect]
     Indication: TRANSPLANT
     Dosage: 5 MG, 1 IN 1 TOTAL;  2.5 MG, 1 IN 1 TOTAL;  2.5 MG, 1 IN 1 TOTAL;  5 MG
     Dates: start: 20040722, end: 20040722
  4. ORTHOCLONE OKT3 [Suspect]
     Indication: TRANSPLANT
     Dosage: 5 MG, 1 IN 1 TOTAL;  2.5 MG, 1 IN 1 TOTAL;  2.5 MG, 1 IN 1 TOTAL;  5 MG
     Dates: start: 20040727
  5. TYLENOL (ACETAMINOPHEN) [Concomitant]
  6. METHYLPRED (METHYLPREDNISOLONE) [Concomitant]
  7. BENADRYL [Concomitant]

REACTIONS (3)
  - DYSPNOEA [None]
  - FLUID OVERLOAD [None]
  - INFUSION RELATED REACTION [None]
